FAERS Safety Report 13389762 (Version 3)
Quarter: 2017Q2

REPORT INFORMATION
  Report Type: Report from Study
  Country: None (occurrence: CO)
  Receive Date: 20170331
  Receipt Date: 20170425
  Transmission Date: 20170830
  Serious: Yes (Other)
  Sender: FDA-Public Use
  Company Number: CO-ABBVIE-17K-036-1928272-00

PATIENT
  Age: 49 Year
  Sex: Female
  Weight: 80 kg

DRUGS (1)
  1. HUMIRA [Suspect]
     Active Substance: ADALIMUMAB
     Indication: PSORIASIS
     Route: 058
     Dates: start: 20130318, end: 20170222

REACTIONS (3)
  - Polyp [Recovering/Resolving]
  - Postoperative wound complication [Unknown]
  - Cervical polyp [Recovering/Resolving]

NARRATIVE: CASE EVENT DATE: 20150329
